FAERS Safety Report 9631328 (Version 1)
Quarter: 2013Q4

REPORT INFORMATION
  Report Type: Spontaneous
  Country: US (occurrence: None)
  Receive Date: 20131011
  Receipt Date: 20131011
  Transmission Date: 20140711
  Serious: Yes (Other)
  Sender: FDA-Public Use
  Company Number: MY-TORRENT-00000024

PATIENT
  Sex: Female

DRUGS (3)
  1. TORLEVA [Suspect]
     Indication: CONVULSION
     Route: 048
     Dates: start: 201306
  2. KEPPRA [Suspect]
     Indication: CONVULSION
     Route: 048
     Dates: start: 201306
  3. EPILLM [Concomitant]

REACTIONS (4)
  - Epilepsy [None]
  - Condition aggravated [None]
  - Product substitution issue [None]
  - Drug interaction [None]
